FAERS Safety Report 17759603 (Version 2)
Quarter: 2020Q2

REPORT INFORMATION
  Report Type: Spontaneous
  Country: CA (occurrence: CA)
  Receive Date: 20200508
  Receipt Date: 20200513
  Transmission Date: 20200714
  Serious: Yes (Other)
  Sender: FDA-Public Use
  Company Number: CA-ASTRAZENECA-2020SE60058

PATIENT
  Sex: Male
  Weight: 40.8 kg

DRUGS (1)
  1. SEROQUEL [Suspect]
     Active Substance: QUETIAPINE FUMARATE
     Route: 048

REACTIONS (17)
  - Haematemesis [Unknown]
  - Constipation [Unknown]
  - Blindness [Unknown]
  - Priapism [Unknown]
  - Seizure [Unknown]
  - Prescribed overdose [Unknown]
  - Liver injury [Unknown]
  - Myocardial infarction [Unknown]
  - Insomnia [Unknown]
  - Pyrexia [Unknown]
  - Weight decreased [Unknown]
  - Pancreatic injury [Unknown]
  - Tooth loss [Unknown]
  - Mental disability [Unknown]
  - Renal injury [Unknown]
  - Product prescribing error [Unknown]
  - Aggression [Unknown]

NARRATIVE: CASE EVENT DATE: 2007
